FAERS Safety Report 24875217 (Version 3)
Quarter: 2025Q1

REPORT INFORMATION
  Report Type: Spontaneous
  Country: AU (occurrence: AU)
  Receive Date: 20250122
  Receipt Date: 20250305
  Transmission Date: 20250409
  Serious: No
  Sender: MYLAN
  Company Number: AU-MYLANLABS-2025M1004116

PATIENT
  Sex: Female

DRUGS (1)
  1. EPIPEN [Suspect]
     Active Substance: EPINEPHRINE
     Indication: Product used for unknown indication

REACTIONS (2)
  - Device failure [Unknown]
  - Drug dose omission by device [Unknown]
